FAERS Safety Report 8589108 (Version 3)
Quarter: 2012Q4

REPORT INFORMATION
  Report Type: Report from Study
  Country: US (occurrence: US)
  Receive Date: 20120531
  Receipt Date: 20121029
  Transmission Date: 20130627
  Serious: Yes (Other)
  Sender: FDA-Public Use
  Company Number: US-ROCHE-1071701

PATIENT
  Age: 50 Year
  Sex: Female

DRUGS (20)
  1. CAPECITABINE [Suspect]
     Indication: BREAST CANCER
     Dosage: on day 1 to day 14 of 21 day cycle
     Route: 048
     Dates: start: 20111011, end: 20120501
  2. RAMUCIRUMAB [Suspect]
     Indication: BREAST CANCER
     Route: 042
     Dates: start: 20120222, end: 20120424
  3. RAMUCIRUMAB [Suspect]
     Route: 042
     Dates: start: 20120424, end: 20120508
  4. OXYCODONE [Concomitant]
     Route: 065
     Dates: start: 20090801
  5. ATIVAN [Concomitant]
     Route: 065
     Dates: start: 20100302
  6. LYRICA [Concomitant]
     Route: 065
     Dates: start: 20080801
  7. AMLODIPINE [Concomitant]
     Route: 065
     Dates: start: 20100413
  8. SENNA [Concomitant]
     Route: 065
     Dates: start: 20100316
  9. VITAMIN E [Concomitant]
     Route: 065
     Dates: start: 20100330
  10. DOCUSATE [Concomitant]
     Route: 065
     Dates: start: 20090824
  11. ALEVE [Concomitant]
     Route: 065
     Dates: start: 20101230
  12. B COMPLEX [Concomitant]
     Route: 065
     Dates: start: 20100831
  13. PYCNOGENOL [Concomitant]
     Route: 065
     Dates: start: 20100302
  14. PHOSPHATIDYLSERINE [Concomitant]
     Route: 065
     Dates: start: 20100302
  15. ADVIL [Concomitant]
     Route: 065
     Dates: start: 20091123
  16. MULTIVITAMIN [Concomitant]
     Route: 065
     Dates: start: 20090804
  17. VITAMIN C [Concomitant]
     Route: 065
     Dates: start: 20090804
  18. CALCIUM CARBONATE [Concomitant]
     Route: 065
     Dates: start: 20090804
  19. VITAMIN D [Concomitant]
     Route: 065
     Dates: start: 20090804
  20. CINNAMON [Concomitant]
     Route: 065
     Dates: start: 20090804

REACTIONS (1)
  - Haemangioma of skin [Recovered/Resolved]
